FAERS Safety Report 5792166-6 (Version None)
Quarter: 2008Q2

REPORT INFORMATION
  Report Type: 
  Country: None (occurrence: None)
  Receive Date: 20080626
  Receipt Date: 20080310
  Transmission Date: 20081010
  Serious: No
  Sender: FDA-Public Use
  Company Number: US-BOEHRINGER INGELHEIM GMBH, GERMANY-2007-BP-16620BP

PATIENT
  Sex: Male
  Weight: 84 kg

DRUGS (3)
  1. MIRAPEX [Suspect]
     Indication: PARKINSON'S DISEASE
     Dates: start: 19970801, end: 20050801
  2. SINEMET CR [Concomitant]
  3. PAMELOR [Concomitant]
     Indication: SLEEP DISORDER
     Dates: end: 20000101

REACTIONS (6)
  - ANXIETY [None]
  - DEPRESSION [None]
  - EMOTIONAL DISTRESS [None]
  - FEAR [None]
  - PATHOLOGICAL GAMBLING [None]
  - STRESS [None]
